FAERS Safety Report 9687511 (Version 1)
Quarter: 2013Q4

REPORT INFORMATION
  Report Type: Spontaneous
  Country: FR (occurrence: FR)
  Receive Date: 20131114
  Receipt Date: 20131114
  Transmission Date: 20140711
  Serious: Yes (Hospitalization)
  Sender: FDA-Public Use
  Company Number: FR-JNJFOC-20131101896

PATIENT
  Age: 62 Year
  Sex: Male

DRUGS (3)
  1. HALDOL DECANOAS [Suspect]
     Indication: SCHIZOPHRENIA, PARANOID TYPE
     Route: 030
     Dates: end: 20100923
  2. LEPTICUR [Concomitant]
     Indication: PRODUCT USED FOR UNKNOWN INDICATION
     Route: 065
  3. VALIUM [Concomitant]
     Indication: PRODUCT USED FOR UNKNOWN INDICATION
     Dosage: 1 DOSE IN THE MORNING AND IN THE EVENING
     Route: 065

REACTIONS (12)
  - Extrapyramidal disorder [Unknown]
  - Fall [Recovered/Resolved]
  - Head injury [Unknown]
  - Loss of consciousness [Recovered/Resolved]
  - Meningorrhagia [Unknown]
  - Facial bones fracture [Unknown]
  - Brain contusion [Unknown]
  - Malaise [Recovered/Resolved]
  - Hyperhidrosis [Unknown]
  - Headache [Unknown]
  - Orthostatic hypotension [Unknown]
  - Hypertension [Unknown]
